FAERS Safety Report 7396350-X (Version None)
Quarter: 2011Q2

REPORT INFORMATION
  Report Type: 
  Country: None (occurrence: None)
  Receive Date: 20110406
  Receipt Date: 20110323
  Transmission Date: 20111010
  Serious: Yes (Other)
  Sender: FDA-Public Use
  Company Number: US-JNJFOC-20110301145

PATIENT
  Sex: Female
  Weight: 81.65 kg

DRUGS (6)
  1. REMICADE [Suspect]
     Indication: RHEUMATOID ARTHRITIS
     Route: 042
  2. SINGULAIR [Concomitant]
     Indication: ASTHMA
     Route: 048
  3. FOLIC ACID [Concomitant]
     Route: 048
  4. SULFADIAZINE [Concomitant]
     Indication: RHEUMATOID ARTHRITIS
     Route: 048
  5. METHOTREXATE [Concomitant]
     Indication: RHEUMATOID ARTHRITIS
     Route: 048
  6. ASPIRIN [Concomitant]
     Indication: CARDIAC DISORDER
     Route: 048

REACTIONS (10)
  - BLOOD CHOLESTEROL INCREASED [None]
  - VITAMIN D DEFICIENCY [None]
  - DEHYDRATION [None]
  - VOMITING [None]
  - DIARRHOEA [None]
  - ABASIA [None]
  - VIRAL INFECTION [None]
  - BONE DENSITY DECREASED [None]
  - HYPERTENSION [None]
  - ASTHENIA [None]
